FAERS Safety Report 4632289-8 (Version None)
Quarter: 2005Q2

REPORT INFORMATION
  Report Type: 
  Country: None (occurrence: None)
  Receive Date: 20050411
  Receipt Date: 20050330
  Transmission Date: 20051028
  Serious: Yes (Hospitalization, Other)
  Sender: FDA-Public Use
  Company Number: FR-BRISTOL-MYERS SQUIBB COMPANY-12918314

PATIENT
  Age: 82 Year
  Sex: Female

DRUGS (1)
  1. COUMADIN [Suspect]
     Route: 048
     Dates: end: 20050131

REACTIONS (6)
  - ANAEMIA [None]
  - EPISTAXIS [None]
  - MEDICATION ERROR [None]
  - METRORRHAGIA [None]
  - NEUTROPENIA [None]
  - PROTHROMBIN TIME RATIO DECREASED [None]
